FAERS Safety Report 5488403-8 (Version None)
Quarter: 2007Q4

REPORT INFORMATION
  Report Type: 
  Country: None (occurrence: None)
  Receive Date: 20071005
  Receipt Date: 20070814
  Transmission Date: 20080405
  Serious: No
  Sender: FDA-Public Use
  Company Number: PHEH2007US11360

PATIENT
  Sex: Male

DRUGS (1)
  1. TEKTURNA [Suspect]

REACTIONS (1)
  - MOUNTAIN SICKNESS ACUTE [None]
